FAERS Safety Report 12963143 (Version 1)
Quarter: 2016Q4

REPORT INFORMATION
  Report Type: Spontaneous
  Country: US (occurrence: US)
  Receive Date: 20161122
  Receipt Date: 20161122
  Transmission Date: 20170207
  Serious: No
  Sender: FDA-Public Use
  Company Number: US-BIOGEN-2016BI00319872

PATIENT
  Age: 36 Year

DRUGS (2)
  1. TYSABRI [Suspect]
     Active Substance: NATALIZUMAB
     Indication: MULTIPLE SCLEROSIS
     Route: 065
  2. TECFIDERA [Suspect]
     Active Substance: DIMETHYL FUMARATE
     Indication: MULTIPLE SCLEROSIS
     Route: 065

REACTIONS (12)
  - Neuralgia [Unknown]
  - Muscle spasticity [Unknown]
  - Vertigo [Unknown]
  - Temperature intolerance [Unknown]
  - Fatigue [Unknown]
  - Visual impairment [Unknown]
  - Balance disorder [Unknown]
  - Cognitive disorder [Unknown]
  - Infusion site pain [Unknown]
  - Poor venous access [Unknown]
  - Anxiety [Unknown]
  - Dizziness [Unknown]
